FAERS Safety Report 10515515 (Version 2)
Quarter: 2014Q4

REPORT INFORMATION
  Report Type: Spontaneous
  Country: US (occurrence: None)
  Receive Date: 20141009
  Receipt Date: 20141202
  Transmission Date: 20150528
  Serious: Yes (Other)
  Sender: FDA-Public Use
  Company Number: AEGR000727

PATIENT
  Age: 53 Year
  Sex: Female
  Weight: 52.2 kg

DRUGS (16)
  1. JUXTAPID [Suspect]
     Active Substance: LOMITAPIDE MESYLATE
     Indication: TYPE IIA HYPERLIPIDAEMIA
     Route: 048
     Dates: start: 201306, end: 201405
  2. GABAPENTIN. [Concomitant]
     Active Substance: GABAPENTIN
  3. FLUOXETINE [Concomitant]
     Active Substance: FLUOXETINE\FLUOXETINE HYDROCHLORIDE
  4. ROBAXIN [Concomitant]
     Active Substance: METHOCARBAMOL
  5. TRAMADOL [Concomitant]
     Active Substance: TRAMADOL
  6. VITAMIN E (TOCOPHERYL ACETATE) [Concomitant]
  7. MECLOZINE HCL [Concomitant]
     Active Substance: MECLOZINE DIHYDROCHLORIDE
  8. ZETIA [Concomitant]
     Active Substance: EZETIMIBE
  9. CENTRUM (MINERALS NOS, VITAMINS NOS) [Concomitant]
  10. XANAX [Concomitant]
     Active Substance: ALPRAZOLAM
  11. LIPITOR [Concomitant]
     Active Substance: ATORVASTATIN CALCIUM
  12. CALCIUM [Concomitant]
     Active Substance: CALCIUM
  13. PLAVIX [Concomitant]
     Active Substance: CLOPIDOGREL BISULFATE
  14. OMEGA 3 6 9 [Concomitant]
  15. NAPROXEN. [Concomitant]
     Active Substance: NAPROXEN
  16. METOPROLOL [Concomitant]
     Active Substance: METOPROLOL

REACTIONS (5)
  - Diarrhoea [None]
  - Dizziness [None]
  - Coronary artery occlusion [None]
  - Weight decreased [None]
  - Vision blurred [None]

NARRATIVE: CASE EVENT DATE: 201407
